FAERS Safety Report 12137586 (Version 3)
Quarter: 2016Q2

REPORT INFORMATION
  Report Type: Spontaneous
  Country: AU (occurrence: AU)
  Receive Date: 20160302
  Receipt Date: 20160627
  Transmission Date: 20160815
  Serious: Yes (Death)
  Sender: FDA-Public Use
  Company Number: AU-009507513-1509AUS000479

PATIENT
  Age: 50 Year
  Sex: Male
  Weight: 95.5 kg

DRUGS (1)
  1. KEYTRUDA [Suspect]
     Active Substance: PEMBROLIZUMAB
     Indication: MUCOEPIDERMOID CARCINOMA OF SALIVARY GLAND
     Dosage: CYCLE 1
     Dates: start: 201509

REACTIONS (2)
  - Off label use [Fatal]
  - Death [Fatal]

NARRATIVE: CASE EVENT DATE: 2015
